FAERS Safety Report 4570064-3 (Version None)
Quarter: 2005Q1

REPORT INFORMATION
  Report Type: 
  Country: None (occurrence: None)
  Receive Date: 20050125
  Receipt Date: 20050125
  Transmission Date: 20050727
  Serious: Yes (Hospitalization, Other)
  Sender: FDA-Public Use
  Company Number: None

PATIENT
  Age: 48 Year
  Sex: Male
  Weight: 80.7403 kg

DRUGS (6)
  1. VIOXX [Suspect]
     Indication: CHEST PAIN
     Dosage: 25 MG
     Dates: start: 20000101, end: 20030101
  2. VIOXX [Suspect]
     Indication: GASTROINTESTINAL DISORDER
     Dosage: 25 MG
     Dates: start: 20000101, end: 20030101
  3. VIOXX [Suspect]
     Indication: INTERVERTEBRAL DISC PROTRUSION
     Dosage: 25 MG
     Dates: start: 20000101, end: 20030101
  4. CELEBREX [Suspect]
  5. BEXTRA [Suspect]
  6. CELESTONE PAIN THEOPL SHUTS [Concomitant]

REACTIONS (7)
  - ABDOMINAL DISTENSION [None]
  - CHEST PAIN [None]
  - DYSPNOEA [None]
  - GASTRIC DISORDER [None]
  - GASTROINTESTINAL DISORDER [None]
  - LOWER GASTROINTESTINAL HAEMORRHAGE [None]
  - UPPER GASTROINTESTINAL HAEMORRHAGE [None]
